FAERS Safety Report 23084627 (Version 4)
Quarter: 2023Q4

REPORT INFORMATION
  Report Type: Report from Study
  Country: IT (occurrence: IT)
  Receive Date: 20231019
  Receipt Date: 20231114
  Transmission Date: 20240109
  Serious: Yes (Hospitalization, Other)
  Sender: FDA-Public Use
  Company Number: IT-BAXTER-2023BAX032497

PATIENT
  Age: 74 Year
  Sex: Female
  Weight: 63 kg

DRUGS (45)
  1. DOXORUBICIN HYDROCHLORIDE [Suspect]
     Active Substance: DOXORUBICIN HYDROCHLORIDE
     Indication: Diffuse large B-cell lymphoma
     Dosage: 90.5 MG, EVERY 3 WEEKS
     Route: 042
     Dates: start: 20230620, end: 20230801
  2. DOXORUBICIN HYDROCHLORIDE [Suspect]
     Active Substance: DOXORUBICIN HYDROCHLORIDE
     Dosage: 86.5 MG, EVERY 3 WEEKS
     Route: 042
     Dates: start: 20230822
  3. VINCRISTINE SULFATE [Suspect]
     Active Substance: VINCRISTINE SULFATE
     Indication: Diffuse large B-cell lymphoma
     Dosage: 2 MG, EVERY 3 WEEKS
     Route: 042
     Dates: start: 20230620
  4. RITUXIMAB [Suspect]
     Active Substance: RITUXIMAB
     Indication: Diffuse large B-cell lymphoma
     Dosage: 678.6 MG, EVERY 3 WEEKS
     Route: 042
     Dates: start: 20200620, end: 20230801
  5. RITUXIMAB [Suspect]
     Active Substance: RITUXIMAB
     Dosage: 648.9 MG, EVERY 3 WEEKS
     Route: 042
     Dates: start: 20230822
  6. RITUXIMAB [Suspect]
     Active Substance: RITUXIMAB
     Dosage: 648.9 MG, EVERY 3 WEEKS, ONGOING
     Route: 042
     Dates: start: 20200620
  7. PREDNISONE [Suspect]
     Active Substance: PREDNISONE
     Indication: Diffuse large B-cell lymphoma
     Dosage: DAILY C1-6, DAY 1-5, EVERY 1 DAYS
     Route: 048
     Dates: start: 20230620
  8. PREDNISONE [Suspect]
     Active Substance: PREDNISONE
     Dosage: 100 MG DAILY C1-6, DAY 1-5, EVERY 1 DAYS, ONGOING
     Route: 048
     Dates: start: 20230620
  9. CYCLOPHOSPHAMIDE [Suspect]
     Active Substance: CYCLOPHOSPHAMIDE
     Indication: Diffuse large B-cell lymphoma
     Dosage: 1357.3 MG, EVERY 3 WEEKS
     Route: 042
     Dates: start: 20230620, end: 20230801
  10. CYCLOPHOSPHAMIDE [Suspect]
     Active Substance: CYCLOPHOSPHAMIDE
     Dosage: 1297.9 MG, EVERY 3 WEEKS
     Route: 042
     Dates: start: 20230822
  11. CYCLOPHOSPHAMIDE [Suspect]
     Active Substance: CYCLOPHOSPHAMIDE
     Dosage: 1297.9 MG, EVERY 3 WEEKS, ONGOING
     Route: 042
     Dates: start: 20230620
  12. POLYETHYLENE GLYCOLS [Concomitant]
     Active Substance: POLYETHYLENE GLYCOLS
     Indication: Constipation
     Dosage: 1 PACKET, AS NECESSARY
     Dates: start: 20230624
  13. SODIUM CHLORIDE [Concomitant]
     Active Substance: SODIUM CHLORIDE
     Indication: Fluid replacement
     Dosage: 10 VIAL, EVERY 1 DAYS
     Dates: start: 20230621
  14. ACYCLOVIR [Concomitant]
     Active Substance: ACYCLOVIR
     Indication: Antiviral prophylaxis
     Dosage: 400 MG, 3/WEEKS
     Dates: start: 20230620
  15. ACYCLOVIR [Concomitant]
     Active Substance: ACYCLOVIR
     Dosage: 400 MG, 3/WEEKS
     Dates: start: 20230620
  16. BACTRIM [Concomitant]
     Active Substance: SULFAMETHOXAZOLE\TRIMETHOPRIM
     Indication: Antifungal prophylaxis
     Dosage: 960 MG, EVERY 3 WEEKS
     Dates: start: 20230620
  17. BACTRIM [Concomitant]
     Active Substance: SULFAMETHOXAZOLE\TRIMETHOPRIM
     Dosage: 960 MG, 3/WEEKS
     Dates: start: 20230620
  18. ACETAMINOPHEN [Concomitant]
     Active Substance: ACETAMINOPHEN
     Indication: Antipyresis
     Dosage: AS NECESSARY
     Dates: start: 20230620
  19. BISOPROLOL FUMARATE [Concomitant]
     Active Substance: BISOPROLOL FUMARATE
     Indication: Hypertension
     Dosage: EVERY 24 HOURS
     Dates: start: 202211
  20. FILGRASTIM [Concomitant]
     Active Substance: FILGRASTIM
     Indication: Prophylaxis
     Dosage: 30 MU/L, AS NECESSARY
     Dates: start: 20230719, end: 20230918
  21. PANTOPRAZOLE [Concomitant]
     Active Substance: PANTOPRAZOLE
     Indication: Antacid therapy
     Dosage: EVERY 24 HOURS
     Dates: start: 20230620
  22. PANTOPRAZOLE [Concomitant]
     Active Substance: PANTOPRAZOLE
     Dosage: 20 MG, EVERY 24 HOURS
     Dates: start: 20230620
  23. FUROSEMIDE\SPIRONOLACTONE [Concomitant]
     Active Substance: FUROSEMIDE\SPIRONOLACTONE
     Indication: Prophylaxis
     Dosage: 25 + 37 MG, EVERY 2 DAYS
     Dates: start: 202211
  24. FUROSEMIDE\SPIRONOLACTONE [Concomitant]
     Active Substance: FUROSEMIDE\SPIRONOLACTONE
     Dosage: 25 + 37 MG, EVERY 2 DAYS
     Dates: end: 20230929
  25. VALSARTAN [Concomitant]
     Active Substance: VALSARTAN
     Indication: Hypertension
     Dosage: EVERY 24 HOURS
     Dates: start: 202211
  26. EPOETIN ALFA BS [Concomitant]
     Active Substance: ERYTHROPOIETIN
     Indication: Anaemia
     Dosage: 40000 UL, EVERY 1 WEEKS
     Dates: start: 20230629
  27. AMIODARONE [Concomitant]
     Active Substance: AMIODARONE
     Indication: Arrhythmia prophylaxis
     Dosage: EVERY 24 HOURS
     Dates: start: 202211, end: 20231001
  28. AMIODARONE [Concomitant]
     Active Substance: AMIODARONE
     Dosage: 200 MG, EVERY 24 HOURS, START DATE: NOV-2022
     Dates: end: 20231001
  29. METOCLOPRAMIDE [Concomitant]
     Active Substance: METOCLOPRAMIDE
     Indication: Prophylaxis of nausea and vomiting
     Dosage: AS NECESSARY
     Dates: start: 20230622
  30. METOCLOPRAMIDE [Concomitant]
     Active Substance: METOCLOPRAMIDE
     Dosage: 1 DOSAGE FORM, AS NECESSARY
     Dates: start: 20230622
  31. CETIRIZINE [Concomitant]
     Active Substance: CETIRIZINE HYDROCHLORIDE
     Indication: Injection site reaction
     Dosage: 10 MG, EVERY 24 HOURS
     Dates: start: 20230912
  32. CETIRIZINE [Concomitant]
     Active Substance: CETIRIZINE HYDROCHLORIDE
     Dosage: 10 MG, EVERY 24 HOURS
     Dates: start: 20230912
  33. ENOXAPARIN SODIUM [Concomitant]
     Active Substance: ENOXAPARIN SODIUM
     Indication: Thrombosis prophylaxis
     Dosage: 6000 UL, 2/DAYS
     Dates: start: 20230629, end: 20230922
  34. LACTULOSE [Concomitant]
     Active Substance: LACTULOSE
     Indication: Constipation prophylaxis
     Dosage: 66.7 %, AS NEEDED
  35. LACTULOSE [Concomitant]
     Active Substance: LACTULOSE
     Dosage: 66.7 %, AS NECESSARY
     Dates: start: 20230719
  36. SENNOSIDES A AND B [Concomitant]
     Active Substance: SENNOSIDES A AND B
     Indication: Constipation prophylaxis
     Dosage: 12 MG, AS NEEDED
     Dates: start: 20230719, end: 20231002
  37. SENNOSIDES A AND B [Concomitant]
     Active Substance: SENNOSIDES A AND B
     Dosage: 12 MG, AS NECESSARY
     Dates: start: 20230719, end: 20231002
  38. BETAMETHASONE VALERATE/GENTAMICIN SULFATE [Concomitant]
     Indication: Injection site reaction
     Dosage: 1 APPLICATION, EVERY 1 DAYS
     Dates: start: 20230910, end: 20230917
  39. LEVOFLOXACIN [Concomitant]
     Active Substance: LEVOFLOXACIN
     Indication: Prophylaxis
     Dosage: 500 MG, AS NEEDED
     Dates: start: 20230622
  40. LEVOFLOXACIN [Concomitant]
     Active Substance: LEVOFLOXACIN
     Dosage: 500 MG, AS NECESSARY
     Dates: start: 20230622
  41. SODIUM CHLORIDE [Concomitant]
     Active Substance: SODIUM CHLORIDE
     Indication: Fluid replacement
     Dosage: 10 VIAL, EVERY 1 DAYS
     Dates: start: 20230621
  42. EPOETIN ALFA [Concomitant]
     Active Substance: ERYTHROPOIETIN
     Indication: Anaemia
     Dosage: 40000 UL, EVERY 1 WEEKS
     Dates: start: 20230629
  43. ACETAMINOPHEN [Concomitant]
     Active Substance: ACETAMINOPHEN
     Indication: Antipyresis
     Dosage: 1000 MG, AS NECESSARY
     Dates: start: 20230620
  44. BISOPROLOL [Concomitant]
     Active Substance: BISOPROLOL\BISOPROLOL FUMARATE
     Indication: Hypertension
     Dosage: 1.25 MG, EVERY 24 HOURS
     Dates: start: 202211
  45. VALSARTAN [Concomitant]
     Active Substance: VALSARTAN
     Indication: Hypertension
     Dosage: 320 MG, EVERY 24 HOURS
     Dates: start: 202211

REACTIONS (1)
  - Febrile neutropenia [Recovered/Resolved]

NARRATIVE: CASE EVENT DATE: 20230922
